FAERS Safety Report 12193295 (Version 1)
Quarter: 2016Q1

REPORT INFORMATION
  Report Type: Spontaneous
  Country: US (occurrence: US)
  Receive Date: 20160319
  Receipt Date: 20160319
  Transmission Date: 20160526
  Serious: No
  Sender: FDA-Public Use
  Company Number: US-B.I. PHARMACEUTICALS,INC./RIDGEFIELD-2016-BI-08177BP

PATIENT
  Age: 67 Year
  Sex: Female

DRUGS (1)
  1. SPIRIVA [Suspect]
     Active Substance: TIOTROPIUM BROMIDE MONOHYDRATE
     Indication: BRONCHIECTASIS
     Dosage: 2 ANZ
     Route: 055
     Dates: start: 20160124

REACTIONS (4)
  - Dyspnoea [Unknown]
  - Dizziness [Unknown]
  - Viral infection [Unknown]
  - Cough [Unknown]

NARRATIVE: CASE EVENT DATE: 20160125
